FAERS Safety Report 8421976-1 (Version None)
Quarter: 2012Q2

REPORT INFORMATION
  Report Type: 
  Country: None (occurrence: None)
  Receive Date: 20120608
  Receipt Date: 20120604
  Transmission Date: 20120825
  Serious: Yes (Other)
  Sender: FDA-Public Use
  Company Number: US-PFIZER INC-2012120668

PATIENT
  Sex: Female

DRUGS (7)
  1. FLUTICASONE [Concomitant]
     Dosage: UNK
     Route: 045
  2. CETIRIZINE [Concomitant]
     Dosage: UNK
  3. TRAMADOL [Concomitant]
     Dosage: 50 (NO UNITS PROVIDED)
  4. XALKORI [Suspect]
     Indication: NON-SMALL CELL LUNG CANCER
     Dosage: 250 MG, 2X/DAY
     Route: 048
     Dates: start: 20111101, end: 20120401
  5. XALKORI [Suspect]
     Indication: ANAPLASTIC LYMPHOMA KINASE GENE MUTATION
     Dosage: 250 MG, 1X/DAY
     Route: 048
     Dates: start: 20120401, end: 20120501
  6. LANSOPRAZOLE [Concomitant]
     Dosage: 30 (NO UNITS PROVIDED)
  7. XALKORI [Suspect]
     Dosage: ALTERNATELY 250 MG ONCE A DAY AND 250 MG TWICE A DAY
     Route: 048
     Dates: start: 20120501

REACTIONS (6)
  - ASTHENIA [None]
  - SLUGGISHNESS [None]
  - VISION BLURRED [None]
  - CONJUNCTIVAL HAEMORRHAGE [None]
  - VISUAL IMPAIRMENT [None]
  - LACRIMATION INCREASED [None]
